FAERS Safety Report 25267780 (Version 1)
Quarter: 2025Q2

REPORT INFORMATION
  Report Type: Spontaneous
  Country: CH (occurrence: CH)
  Receive Date: 20250505
  Receipt Date: 20250505
  Transmission Date: 20250717
  Serious: Yes (Other)
  Sender: MYLAN
  Company Number: None

PATIENT
  Age: 93 Year
  Sex: Male

DRUGS (64)
  1. PREGABALIN [Suspect]
     Active Substance: PREGABALIN
     Indication: Product used for unknown indication
     Dosage: 200 MILLIGRAM, Q8H
     Dates: start: 20250330, end: 20250401
  2. PREGABALIN [Suspect]
     Active Substance: PREGABALIN
     Dosage: 200 MILLIGRAM, Q8H
     Route: 048
     Dates: start: 20250330, end: 20250401
  3. PREGABALIN [Suspect]
     Active Substance: PREGABALIN
     Dosage: 200 MILLIGRAM, Q8H
     Route: 048
     Dates: start: 20250330, end: 20250401
  4. PREGABALIN [Suspect]
     Active Substance: PREGABALIN
     Dosage: 200 MILLIGRAM, Q8H
     Dates: start: 20250330, end: 20250401
  5. ASPIRIN [Concomitant]
     Active Substance: ASPIRIN
  6. ASPIRIN [Concomitant]
     Active Substance: ASPIRIN
     Route: 048
  7. ASPIRIN [Concomitant]
     Active Substance: ASPIRIN
     Route: 048
  8. ASPIRIN [Concomitant]
     Active Substance: ASPIRIN
  9. CALCIUM\CHOLECALCIFEROL [Concomitant]
     Active Substance: CALCIUM\CHOLECALCIFEROL
  10. CALCIUM\CHOLECALCIFEROL [Concomitant]
     Active Substance: CALCIUM\CHOLECALCIFEROL
     Route: 048
  11. CALCIUM\CHOLECALCIFEROL [Concomitant]
     Active Substance: CALCIUM\CHOLECALCIFEROL
     Route: 048
  12. CALCIUM\CHOLECALCIFEROL [Concomitant]
     Active Substance: CALCIUM\CHOLECALCIFEROL
  13. Carbolevure [Concomitant]
  14. Carbolevure [Concomitant]
     Route: 048
  15. Carbolevure [Concomitant]
     Route: 048
  16. Carbolevure [Concomitant]
  17. DAFALGAN [Concomitant]
     Active Substance: ACETAMINOPHEN
  18. DAFALGAN [Concomitant]
     Active Substance: ACETAMINOPHEN
     Route: 048
  19. DAFALGAN [Concomitant]
     Active Substance: ACETAMINOPHEN
     Route: 048
  20. DAFALGAN [Concomitant]
     Active Substance: ACETAMINOPHEN
  21. PAROXETINE HYDROCHLORIDE [Concomitant]
     Active Substance: PAROXETINE HYDROCHLORIDE
  22. PAROXETINE HYDROCHLORIDE [Concomitant]
     Active Substance: PAROXETINE HYDROCHLORIDE
     Route: 048
  23. PAROXETINE HYDROCHLORIDE [Concomitant]
     Active Substance: PAROXETINE HYDROCHLORIDE
     Route: 048
  24. PAROXETINE HYDROCHLORIDE [Concomitant]
     Active Substance: PAROXETINE HYDROCHLORIDE
  25. DUTASTERIDE\TAMSULOSIN [Concomitant]
     Active Substance: DUTASTERIDE\TAMSULOSIN
  26. DUTASTERIDE\TAMSULOSIN [Concomitant]
     Active Substance: DUTASTERIDE\TAMSULOSIN
     Route: 048
  27. DUTASTERIDE\TAMSULOSIN [Concomitant]
     Active Substance: DUTASTERIDE\TAMSULOSIN
     Route: 048
  28. DUTASTERIDE\TAMSULOSIN [Concomitant]
     Active Substance: DUTASTERIDE\TAMSULOSIN
  29. EUTHYROX [Concomitant]
     Active Substance: LEVOTHYROXINE SODIUM
  30. EUTHYROX [Concomitant]
     Active Substance: LEVOTHYROXINE SODIUM
     Route: 048
  31. EUTHYROX [Concomitant]
     Active Substance: LEVOTHYROXINE SODIUM
     Route: 048
  32. EUTHYROX [Concomitant]
     Active Substance: LEVOTHYROXINE SODIUM
  33. IMOVANE [Concomitant]
     Active Substance: ZOPICLONE
  34. IMOVANE [Concomitant]
     Active Substance: ZOPICLONE
     Route: 048
  35. IMOVANE [Concomitant]
     Active Substance: ZOPICLONE
     Route: 048
  36. IMOVANE [Concomitant]
     Active Substance: ZOPICLONE
  37. CHOLECALCIFEROL [Concomitant]
     Active Substance: CHOLECALCIFEROL
  38. CHOLECALCIFEROL [Concomitant]
     Active Substance: CHOLECALCIFEROL
     Route: 048
  39. CHOLECALCIFEROL [Concomitant]
     Active Substance: CHOLECALCIFEROL
     Route: 048
  40. CHOLECALCIFEROL [Concomitant]
     Active Substance: CHOLECALCIFEROL
  41. PANTOZOL [Concomitant]
     Active Substance: PANTOPRAZOLE SODIUM
  42. PANTOZOL [Concomitant]
     Active Substance: PANTOPRAZOLE SODIUM
     Route: 048
  43. PANTOZOL [Concomitant]
     Active Substance: PANTOPRAZOLE SODIUM
     Route: 048
  44. PANTOZOL [Concomitant]
     Active Substance: PANTOPRAZOLE SODIUM
  45. SEROQUEL [Concomitant]
     Active Substance: QUETIAPINE FUMARATE
  46. SEROQUEL [Concomitant]
     Active Substance: QUETIAPINE FUMARATE
     Route: 048
  47. SEROQUEL [Concomitant]
     Active Substance: QUETIAPINE FUMARATE
     Route: 048
  48. SEROQUEL [Concomitant]
     Active Substance: QUETIAPINE FUMARATE
  49. TORSEMIDE [Concomitant]
     Active Substance: TORSEMIDE
  50. TORSEMIDE [Concomitant]
     Active Substance: TORSEMIDE
     Route: 048
  51. TORSEMIDE [Concomitant]
     Active Substance: TORSEMIDE
     Route: 048
  52. TORSEMIDE [Concomitant]
     Active Substance: TORSEMIDE
  53. FOLIC ACID [Concomitant]
     Active Substance: FOLIC ACID
  54. FOLIC ACID [Concomitant]
     Active Substance: FOLIC ACID
     Route: 048
  55. FOLIC ACID [Concomitant]
     Active Substance: FOLIC ACID
     Route: 048
  56. FOLIC ACID [Concomitant]
     Active Substance: FOLIC ACID
  57. CANDESARTAN [Concomitant]
     Active Substance: CANDESARTAN
  58. CANDESARTAN [Concomitant]
     Active Substance: CANDESARTAN
     Route: 048
  59. CANDESARTAN [Concomitant]
     Active Substance: CANDESARTAN
     Route: 048
  60. CANDESARTAN [Concomitant]
     Active Substance: CANDESARTAN
  61. Protagent [Concomitant]
  62. Protagent [Concomitant]
     Route: 047
  63. Protagent [Concomitant]
     Route: 047
  64. Protagent [Concomitant]

REACTIONS (5)
  - Sopor [Recovering/Resolving]
  - Dysarthria [Recovering/Resolving]
  - Dyskinesia [Recovering/Resolving]
  - Asthenia [Recovering/Resolving]
  - Medication error [Recovered/Resolved]

NARRATIVE: CASE EVENT DATE: 20250301
